FAERS Safety Report 5777167-6 (Version None)
Quarter: 2008Q2

REPORT INFORMATION
  Report Type: 
  Country: None (occurrence: None)
  Receive Date: 20080618
  Receipt Date: 20080611
  Transmission Date: 20081010
  Serious: Yes (Hospitalization)
  Sender: FDA-Public Use
  Company Number: FR-ROCHE-570003

PATIENT
  Sex: Male

DRUGS (8)
  1. ROCEPHIN [Suspect]
     Dosage: FORM REPORTED AS INJECTABLE SOLUTION. STRENGTH: 2 G/40 ML
     Route: 042
     Dates: start: 20080516, end: 20080521
  2. ZITHROMAX [Suspect]
     Route: 048
     Dates: start: 20080516, end: 20080521
  3. SOLUPRED [Concomitant]
     Dates: start: 20080516
  4. 1 CONCOMITANT DRUG [Concomitant]
     Dosage: DRUG REPORTED AS MONOTILDIEM. LONG TERM USE.
  5. PANTOPRAZOLE SODIUM [Concomitant]
     Dosage: LONG TERM USE.
  6. REPAGLINIDE [Concomitant]
     Dosage: LONG TERM USE.
  7. IMOVANE [Concomitant]
     Dosage: LONG TERM USE.
  8. LASILIX [Concomitant]
     Route: 042
     Dates: start: 20080518

REACTIONS (3)
  - CHEILITIS [None]
  - DERMATITIS BULLOUS [None]
  - TOXIC SKIN ERUPTION [None]
